FAERS Safety Report 7212403-0 (Version None)
Quarter: 2011Q1

REPORT INFORMATION
  Report Type: 
  Country: None (occurrence: None)
  Receive Date: 20110106
  Receipt Date: 20101230
  Transmission Date: 20110831
  Serious: Yes (Other)
  Sender: FDA-Public Use
  Company Number: FR-PFIZER INC-2010181787

PATIENT
  Age: 52 Year
  Sex: Female

DRUGS (2)
  1. SALAZOPYRINE [Suspect]
     Indication: PSORIATIC ARTHROPATHY
     Dosage: 500 MG, 4X/DAY
     Route: 048
     Dates: start: 20090715, end: 20100227
  2. METOJECT [Suspect]
     Indication: PSORIATIC ARTHROPATHY
     Dosage: 10MG/ML, 1 DOSAGE FORM PER WEEK
     Route: 057
     Dates: start: 20090131, end: 20100301

REACTIONS (2)
  - PERIPHERAL SENSORIMOTOR NEUROPATHY [None]
  - POLYNEUROPATHY [None]
